FAERS Safety Report 20165516 (Version 2)
Quarter: 2022Q1

REPORT INFORMATION
  Report Type: Spontaneous
  Country: US (occurrence: US)
  Receive Date: 20211209
  Receipt Date: 20220315
  Transmission Date: 20220423
  Serious: No
  Sender: FDA-Public Use
  Company Number: US-BAUSCH-BL-2021-039972

PATIENT
  Age: 36 Year
  Sex: Female
  Weight: 54.480 kg

DRUGS (2)
  1. TRETINOIN [Suspect]
     Active Substance: TRETINOIN
     Indication: Product used for unknown indication
     Route: 061
     Dates: start: 202111
  2. ATENOLOL [Concomitant]
     Active Substance: ATENOLOL
     Indication: Keloid scar
     Dosage: 1ML OF 40 MG
     Route: 065

REACTIONS (1)
  - Application site paraesthesia [Recovered/Resolved]
